FAERS Safety Report 6242617-8 (Version None)
Quarter: 2009Q2

REPORT INFORMATION
  Report Type: 
  Country: None (occurrence: None)
  Receive Date: 20090622
  Receipt Date: 20090622
  Transmission Date: 20091009
  Serious: No
  Sender: FDA-Public Use
  Company Number: None

PATIENT
  Age: 55 Year
  Sex: Female
  Weight: 74.8435 kg

DRUGS (1)
  1. ZICAM SWAB MATRIXX [Suspect]
     Indication: NASOPHARYNGITIS
     Dosage: ONE SWAB NASAL  (2 APPLICATIONS)
     Route: 045
     Dates: start: 20030615, end: 20030615

REACTIONS (3)
  - AGEUSIA [None]
  - ANOSMIA [None]
  - RHINALGIA [None]
